FAERS Safety Report 5709325-0 (Version None)
Quarter: 2008Q2

REPORT INFORMATION
  Report Type: 
  Country: None (occurrence: None)
  Receive Date: 20080417
  Receipt Date: 20080417
  Transmission Date: 20081010
  Serious: Yes (Life-Threatening)
  Sender: FDA-Public Use
  Company Number: None

PATIENT
  Age: 79 Year
  Sex: Female
  Weight: 80.2867 kg

DRUGS (11)
  1. RYTHMOL [Suspect]
     Indication: ATRIAL FIBRILLATION
     Dosage: 75 MG T.I.D.
     Dates: start: 19980909, end: 20080107
  2. COUMADIN [Concomitant]
  3. METOPROLOL TARTRATE [Concomitant]
  4. TRANXENE [Concomitant]
  5. FUROSEMIDE [Concomitant]
  6. METOLAXONE [Concomitant]
  7. OMEPRAZOLE [Concomitant]
  8. ATROVENT [Concomitant]
  9. AZMACORT [Concomitant]
  10. ACIPHEX [Concomitant]
  11. REVATIO [Concomitant]

REACTIONS (6)
  - BLOOD BILIRUBIN INCREASED [None]
  - IDIOPATHIC PULMONARY FIBROSIS [None]
  - LIVER DISORDER [None]
  - RESPIRATORY FAILURE [None]
  - UNEVALUABLE EVENT [None]
  - WEIGHT DECREASED [None]
